FAERS Safety Report 21813745 (Version 2)
Quarter: 2023Q1

REPORT INFORMATION
  Report Type: Spontaneous
  Country: US (occurrence: US)
  Receive Date: 20230104
  Receipt Date: 20230110
  Transmission Date: 20230417
  Serious: Yes (Other)
  Sender: FDA-Public Use
  Company Number: US-LA JOLLA PHARMACEUTICAL COMPANY-0000425

PATIENT

DRUGS (9)
  1. GIAPREZA [Suspect]
     Active Substance: ANGIOTENSIN II
     Indication: Product used for unknown indication
     Dosage: UNK
  2. NALOXONE [Concomitant]
     Active Substance: NALOXONE
     Indication: Bradycardia
     Dosage: UNK
  3. NALOXONE [Concomitant]
     Active Substance: NALOXONE
     Indication: Bradypnoea
  4. HEROIN [Concomitant]
     Active Substance: DIAMORPHINE
     Indication: Bradycardia
     Dosage: UNK
  5. HEROIN [Concomitant]
     Active Substance: DIAMORPHINE
     Indication: Bradypnoea
  6. FLUNITRAZEPAM [Concomitant]
     Active Substance: FLUNITRAZEPAM
     Indication: Bradycardia
     Dosage: UNK
  7. FLUNITRAZEPAM [Concomitant]
     Active Substance: FLUNITRAZEPAM
     Indication: Bradypnoea
  8. OXYBATE [Concomitant]
     Active Substance: OXYBATE
     Indication: Bradycardia
     Dosage: UNK
  9. OXYBATE [Concomitant]
     Active Substance: OXYBATE
     Indication: Bradypnoea

REACTIONS (1)
  - Renal failure [Not Recovered/Not Resolved]
